FAERS Safety Report 5296217-7 (Version None)
Quarter: 2007Q2

REPORT INFORMATION
  Report Type: 
  Country: None (occurrence: None)
  Receive Date: 20070413
  Receipt Date: 20070404
  Transmission Date: 20071010
  Serious: Yes (Hospitalization)
  Sender: FDA-Public Use
  Company Number: FR-GLAXOSMITHKLINE-B0464999A

PATIENT
  Age: 78 Year
  Sex: Female
  Weight: 57 kg

DRUGS (10)
  1. LAMICTAL [Suspect]
     Indication: NEUROPATHY PERIPHERAL
     Dosage: 150MG PER DAY
     Route: 048
     Dates: start: 20070312, end: 20070316
  2. LYRICA [Suspect]
     Indication: NEUROPATHY PERIPHERAL
     Dosage: 75MG UNKNOWN
     Route: 048
     Dates: start: 20070312, end: 20070316
  3. ANAFRANIL [Suspect]
     Dosage: 25MG UNKNOWN
     Route: 048
     Dates: end: 20070316
  4. IMOVANE [Concomitant]
     Route: 048
  5. OXYCONTIN [Concomitant]
     Dosage: 60MG PER DAY
     Route: 048
  6. KARDEGIC [Concomitant]
     Route: 065
  7. NEXIUM [Concomitant]
     Route: 065
  8. CO-RENITEC [Concomitant]
     Route: 065
  9. DUPHALAC [Concomitant]
     Route: 065
  10. LANTUS [Concomitant]
     Route: 065

REACTIONS (11)
  - ABNORMAL BEHAVIOUR [None]
  - AGGRESSION [None]
  - AGITATION [None]
  - ANXIETY [None]
  - BODY TEMPERATURE INCREASED [None]
  - CONFUSIONAL STATE [None]
  - CREATININE RENAL CLEARANCE DECREASED [None]
  - DISORIENTATION [None]
  - HALLUCINATION, VISUAL [None]
  - MALAISE [None]
  - OFF LABEL USE [None]
